FAERS Safety Report 14497883 (Version 1)
Quarter: 2018Q1

REPORT INFORMATION
  Report Type: Spontaneous
  Country: ID (occurrence: ID)
  Receive Date: 20180207
  Receipt Date: 20180207
  Transmission Date: 20180509
  Serious: Yes (Other)
  Sender: FDA-Public Use
  Company Number: ID-BAYER-2018-019017

PATIENT
  Age: 42 Year
  Sex: Male

DRUGS (1)
  1. STIVARGA [Suspect]
     Active Substance: REGORAFENIB
     Indication: GASTROINTESTINAL STROMAL CANCER
     Dosage: DAILY DOSE 80 MG (2X40 MG)
     Route: 048
     Dates: start: 201611, end: 201801

REACTIONS (2)
  - Gastrointestinal stromal cancer [None]
  - Therapeutic product ineffective [None]

NARRATIVE: CASE EVENT DATE: 20180115
